FAERS Safety Report 4867563-3 (Version None)
Quarter: 2005Q4

REPORT INFORMATION
  Report Type: 
  Country: None (occurrence: None)
  Receive Date: 20051222
  Receipt Date: 20051212
  Transmission Date: 20060501
  Serious: Yes (Other)
  Sender: FDA-Public Use
  Company Number: 2005167028

PATIENT
  Age: 43 Year
  Sex: Male
  Weight: 81.6475 kg

DRUGS (2)
  1. UNISOM [Suspect]
     Indication: INSOMNIA
     Dosage: 1 SLEEPGEL AS NEEDED, ORAL
     Route: 048
     Dates: end: 20051211
  2. MOMETASONE FUROATE [Concomitant]

REACTIONS (1)
  - HYPOACUSIS [None]
